FAERS Safety Report 24553026 (Version 2)
Quarter: 2024Q4

REPORT INFORMATION
  Report Type: Spontaneous
  Country: CO (occurrence: CO)
  Receive Date: 20241027
  Receipt Date: 20241220
  Transmission Date: 20250115
  Serious: Yes (Other)
  Sender: ABBVIE
  Company Number: CO-JNJFOC-20241068916

PATIENT

DRUGS (1)
  1. IMBRUVICA [Suspect]
     Active Substance: IBRUTINIB
     Indication: Product used for unknown indication
     Route: 048

REACTIONS (7)
  - Cardiotoxicity [Unknown]
  - Cardiac disorder [Unknown]
  - Dilatation atrial [Unknown]
  - Nervous system disorder [Unknown]
  - Myelosuppression [Unknown]
  - Haemorrhage [Unknown]
  - Tumour lysis syndrome [Unknown]
